FAERS Safety Report 7385501-9 (Version None)
Quarter: 2011Q1

REPORT INFORMATION
  Report Type: 
  Country: None (occurrence: None)
  Receive Date: 20110330
  Receipt Date: 20110322
  Transmission Date: 20110831
  Serious: Yes (Other)
  Sender: FDA-Public Use
  Company Number: JP-BRISTOL-MYERS SQUIBB COMPANY-15631310

PATIENT
  Age: 40 Year
  Sex: Male

DRUGS (2)
  1. STEROIDS [Concomitant]
  2. BARACLUDE [Suspect]
     Indication: HEPATITIS ACUTE

REACTIONS (1)
  - LIVER DISORDER [None]
